FAERS Safety Report 4770351-X (Version None)
Quarter: 2005Q3

REPORT INFORMATION
  Report Type: 
  Country: None (occurrence: None)
  Receive Date: 20050915
  Receipt Date: 20050503
  Transmission Date: 20060218
  Serious: No
  Sender: FDA-Public Use
  Company Number: US-GLAXOSMITHKLINE-A0557033A

PATIENT

DRUGS (1)
  1. ABREVA [Suspect]
     Indication: ILL-DEFINED DISORDER

REACTIONS (1)
  - APPLICATION SITE PARAESTHESIA [None]
